FAERS Safety Report 7280511-4 (Version None)
Quarter: 2011Q1

REPORT INFORMATION
  Report Type: 
  Country: None (occurrence: None)
  Receive Date: 20110208
  Receipt Date: 20110127
  Transmission Date: 20110831
  Serious: Yes (Hospitalization)
  Sender: FDA-Public Use
  Company Number: PHHY2011IT08041

PATIENT
  Sex: Male

DRUGS (5)
  1. TAREG [Concomitant]
  2. NORVASC [Concomitant]
  3. TORVAST [Concomitant]
  4. ASPIRIN [Concomitant]
  5. ATENOLOL [Suspect]
     Indication: HYPERTENSION
     Dosage: 25 MG, UNK
     Route: 048
     Dates: start: 20100923, end: 20100926

REACTIONS (4)
  - SINUS BRADYCARDIA [None]
  - FALL [None]
  - BLOOD PRESSURE DIASTOLIC DECREASED [None]
  - SYNCOPE [None]
